FAERS Safety Report 8532483-X (Version None)
Quarter: 2012Q3

REPORT INFORMATION
  Report Type: 
  Country: None (occurrence: None)
  Receive Date: 20120716
  Receipt Date: 20120716
  Transmission Date: 20120928
  Serious: Yes (Disabling)
  Sender: FDA-Public Use
  Company Number: None

PATIENT
  Age: 33 Year
  Sex: Male
  Weight: 70.3075 kg

DRUGS (1)
  1. PROPECIA [Suspect]
     Indication: HAIR TRANSPLANT
     Dosage: 5MG ONCE A DAY PO
     Route: 048

REACTIONS (4)
  - ERECTILE DYSFUNCTION [None]
  - SPERM CONCENTRATION DECREASED [None]
  - SEMEN VOLUME DECREASED [None]
  - LIBIDO DECREASED [None]
